FAERS Safety Report 7927017-4 (Version None)
Quarter: 2011Q4

REPORT INFORMATION
  Report Type: 
  Country: None (occurrence: None)
  Receive Date: 20111117
  Receipt Date: 20111117
  Transmission Date: 20120403
  Serious: Yes (Other)
  Sender: FDA-Public Use
  Company Number: None

PATIENT
  Age: 49 Year
  Sex: Male

DRUGS (1)
  1. LOVENOX [Suspect]

REACTIONS (3)
  - DEVICE BREAKAGE [None]
  - DEVICE FAILURE [None]
  - PRODUCT QUALITY ISSUE [None]
